FAERS Safety Report 6166871-6 (Version None)
Quarter: 2009Q2

REPORT INFORMATION
  Report Type: 
  Country: None (occurrence: None)
  Receive Date: 20090424
  Receipt Date: 20090416
  Transmission Date: 20091009
  Serious: Yes (Death)
  Sender: FDA-Public Use
  Company Number: A0780194A

PATIENT
  Age: 9 Year
  Sex: Male
  Weight: 26.4 kg

DRUGS (2)
  1. ADVAIR HFA [Suspect]
  2. ALBUTEROL [Concomitant]

REACTIONS (1)
  - ASTHMA [None]
